FAERS Safety Report 8423307-X (Version None)
Quarter: 2012Q2

REPORT INFORMATION
  Report Type: 
  Country: None (occurrence: None)
  Receive Date: 20120608
  Receipt Date: 20120515
  Transmission Date: 20120825
  Serious: Yes (Death, Hospitalization)
  Sender: FDA-Public Use
  Company Number: DE-ACTELION-A-US2012-65883

PATIENT
  Sex: Female

DRUGS (1)
  1. VENTAVIS [Suspect]
     Indication: PULMONARY ARTERIAL HYPERTENSION
     Dosage: 5 UG, Q4H
     Route: 055
     Dates: start: 20100315

REACTIONS (7)
  - PULMONARY ARTERIAL HYPERTENSION [None]
  - DELIRIUM [None]
  - BRAIN INJURY [None]
  - OSTEOPOROSIS [None]
  - GENERAL PHYSICAL HEALTH DETERIORATION [None]
  - CONDITION AGGRAVATED [None]
  - HYPOXIA [None]
